FAERS Safety Report 4782917-1 (Version None)
Quarter: 2005Q3

REPORT INFORMATION
  Report Type: 
  Country: None (occurrence: None)
  Receive Date: 20050928
  Receipt Date: 20050928
  Transmission Date: 20060218
  Serious: Yes (Disabling)
  Sender: FDA-Public Use
  Company Number: None

PATIENT
  Age: 57 Year
  Sex: Female
  Weight: 68.0396 kg

DRUGS (1)
  1. RELAFEN [Suspect]
     Indication: ARTHRITIS
     Dosage: 750 2X A DAY
     Dates: start: 20000101, end: 20050101

REACTIONS (7)
  - CATARACT [None]
  - CEREBROVASCULAR ACCIDENT [None]
  - COLOUR VISION TESTS ABNORMAL [None]
  - EYE DISORDER [None]
  - EYE OEDEMA [None]
  - EYE PAIN [None]
  - NEOPLASM [None]
